FAERS Safety Report 9008084 (Version 2)
Quarter: 2013Q2

REPORT INFORMATION
  Report Type: Spontaneous
  Country: US (occurrence: None)
  Receive Date: 20120517
  Receipt Date: 20120830
  Transmission Date: 20140414
  Serious: Yes (Hospitalization, Other)
  Sender: FDA-Public Use
  Company Number: PHHY2011US48229

PATIENT
  Age: 38 Year
  Sex: Male

DRUGS (4)
  1. SANDOSTATIN [Suspect]
     Indication: ACROMEGALY
     Dates: start: 2002
  2. TESTOSTERONE (TESTOSTERONE) [Concomitant]
  3. HCG (CHORIONIC GONADOTROPHIN) [Concomitant]
  4. T4 (LEVOTHYROXINE SODIUM) [Concomitant]

REACTIONS (2)
  - Cholecystitis [None]
  - Diarrhoea [None]
